FAERS Safety Report 5339334-5 (Version None)
Quarter: 2007Q2

REPORT INFORMATION
  Report Type: 
  Country: None (occurrence: None)
  Receive Date: 20070525
  Receipt Date: 20070510
  Transmission Date: 20071010
  Serious: Yes (Hospitalization, Other)
  Sender: FDA-Public Use
  Company Number: 2007RR-07539

PATIENT
  Age: 91 Year
  Sex: Female
  Weight: 59 kg

DRUGS (5)
  1. ACYCLOVIR [Suspect]
     Indication: HERPES ZOSTER
     Dosage: 200 MG, ORAL
     Route: 048
     Dates: start: 20070330, end: 20070331
  2. AMITRIPTYLINE HCL [Suspect]
     Indication: POST HERPETIC NEURALGIA
     Dosage: 25 MG, QD, ORAL
     Route: 048
     Dates: start: 20070320, end: 20070331
  3. DIAZEPAM [Concomitant]
  4. DOXAZOSIN (DOXAZOSIN) [Concomitant]
  5. FUROSEMIDE [Concomitant]

REACTIONS (4)
  - DYSPHONIA [None]
  - DYSPNOEA [None]
  - SWELLING FACE [None]
  - SWOLLEN TONGUE [None]
